FAERS Safety Report 5584274-X (Version None)
Quarter: 2008Q1

REPORT INFORMATION
  Report Type: 
  Country: None (occurrence: None)
  Receive Date: 20080108
  Receipt Date: 20080103
  Transmission Date: 20080703
  Serious: Yes (Other)
  Sender: FDA-Public Use
  Company Number: B0493734A

PATIENT
  Age: 49 Year
  Sex: Male
  Weight: 75 kg

DRUGS (2)
  1. AUGMENTIN '250' [Suspect]
     Dosage: 375MG THREE TIMES PER DAY
     Route: 048
     Dates: start: 20071010, end: 20071016
  2. PARACETAMOL [Concomitant]

REACTIONS (6)
  - ABDOMINAL DISTENSION [None]
  - ABDOMINAL PAIN UPPER [None]
  - ANOREXIA [None]
  - DISTURBANCE IN ATTENTION [None]
  - DIZZINESS [None]
  - JAUNDICE [None]
